FAERS Safety Report 7377615-4 (Version None)
Quarter: 2011Q1

REPORT INFORMATION
  Report Type: 
  Country: None (occurrence: None)
  Receive Date: 20110317
  Receipt Date: 20110302
  Transmission Date: 20110831
  Serious: Yes (Death)
  Sender: FDA-Public Use
  Company Number: 201110237

PATIENT
  Sex: Female

DRUGS (1)
  1. LIORESAL [Suspect]
     Indication: MUSCLE SPASTICITY
     Dosage: 1319.9 MCG, DAILY, INTRATHECAL
     Route: 037

REACTIONS (2)
  - THERAPY CESSATION [None]
  - COMPLICATION OF DEVICE REMOVAL [None]
